FAERS Safety Report 7959965-3 (Version None)
Quarter: 2011Q4

REPORT INFORMATION
  Report Type: 
  Country: None (occurrence: None)
  Receive Date: 20111206
  Receipt Date: 20111202
  Transmission Date: 20120403
  Serious: Yes (Life-Threatening, Hospitalization)
  Sender: FDA-Public Use
  Company Number: JP-PFIZER INC-2011203888

PATIENT
  Age: 88 Year
  Sex: Male
  Weight: 40.3 kg

DRUGS (7)
  1. URUSOTORAN [Concomitant]
     Dosage: 300 MG, DAILY
     Route: 048
  2. OMEPRAZOLE [Concomitant]
  3. URSO 250 [Concomitant]
  4. NORPACE [Suspect]
     Indication: TACHYCARDIA PAROXYSMAL
     Dosage: 200 MG, DAILY
     Route: 048
     Dates: start: 20110716, end: 20110729
  5. VERAPAMIL HCL [Concomitant]
     Dosage: 120 MG, DAILY
     Route: 048
  6. MAGMITT [Concomitant]
  7. SEROQUEL [Concomitant]
     Dosage: 25 MG, DAILY
     Route: 048

REACTIONS (2)
  - HYPOGLYCAEMIA [None]
  - LOSS OF CONSCIOUSNESS [None]
